FAERS Safety Report 9562084 (Version 1)
Quarter: 2013Q3

REPORT INFORMATION
  Report Type: Spontaneous
  Country: GB (occurrence: None)
  Receive Date: 20130925
  Receipt Date: 20130925
  Transmission Date: 20140515
  Serious: Yes (Other)
  Sender: FDA-Public Use
  Company Number: GER/UKI/13/0034593

PATIENT
  Age: 56 Year
  Sex: Female
  Weight: 57 kg

DRUGS (6)
  1. OMEPRAZOLE [Suspect]
     Indication: PRODUCT USED FOR UNKNOWN INDICATION
     Dates: start: 20130829
  2. BECLOMETASONE (BECLOMETASONE) [Concomitant]
  3. BUPROPION (BUPROPION) [Concomitant]
  4. CETIRIZINE (CETIRIZINE) [Concomitant]
  5. FEMOSTON (ZUMESTON) [Concomitant]
  6. RANITIDINE (RANITIDINE) [Concomitant]

REACTIONS (3)
  - Insomnia [None]
  - Poor quality sleep [None]
  - Gastrointestinal sounds abnormal [None]
